FAERS Safety Report 5585348-X (Version None)
Quarter: 2008Q1

REPORT INFORMATION
  Report Type: 
  Country: None (occurrence: None)
  Receive Date: 20080109
  Receipt Date: 20080102
  Transmission Date: 20080703
  Serious: Yes (Death, Hospitalization)
  Sender: FDA-Public Use
  Company Number: US-ROCHE-528932

PATIENT
  Age: 42 Year
  Sex: Male
  Weight: 42 kg

DRUGS (6)
  1. INVIRASE [Suspect]
     Indication: DRUG USE FOR UNKNOWN INDICATION
     Route: 065
  2. INVIRASE [Suspect]
     Route: 065
  3. KALETRA [Concomitant]
  4. KALETRA [Concomitant]
  5. DIDANOSINE [Concomitant]
  6. DIDANOSINE [Concomitant]

REACTIONS (4)
  - MULTI-ORGAN FAILURE [None]
  - PSEUDOMONAL BACTERAEMIA [None]
  - SEPSIS SYNDROME [None]
  - SEPTIC SHOCK [None]
